FAERS Safety Report 5193008-2 (Version None)
Quarter: 2006Q4

REPORT INFORMATION
  Report Type: 
  Country: None (occurrence: None)
  Receive Date: 20061228
  Receipt Date: 20060215
  Transmission Date: 20070319
  Serious: No
  Sender: FDA-Public Use
  Company Number: US-GLAXOSMITHKLINE-A0593844A

PATIENT
  Age: 79 Year
  Sex: Male

DRUGS (7)
  1. AVODART [Suspect]
     Indication: BENIGN PROSTATIC HYPERPLASIA
     Dosage: .5MG PER DAY
     Route: 048
  2. LIPITOR [Concomitant]
  3. ZETIA [Concomitant]
  4. GLYBURIDE [Concomitant]
  5. ACTOS [Concomitant]
  6. METFORMIN HCL [Concomitant]
  7. ASPIRIN [Concomitant]

REACTIONS (1)
  - URINE FLOW DECREASED [None]
